FAERS Safety Report 10243140 (Version 1)
Quarter: 2014Q2

REPORT INFORMATION
  Report Type: Spontaneous
  Country: US (occurrence: US)
  Receive Date: 20140618
  Receipt Date: 20140618
  Transmission Date: 20141212
  Serious: Yes (Death)
  Sender: FDA-Public Use
  Company Number: US-AMGEN-USASP2014045035

PATIENT
  Age: 82 Year
  Sex: Female

DRUGS (10)
  1. ENBREL [Suspect]
     Indication: PRODUCT USED FOR UNKNOWN INDICATION
     Dosage: 50 MG, QWK
     Route: 058
  2. ARAVA [Concomitant]
     Dosage: 10 MG, UNK
  3. ATENOLOL [Concomitant]
     Dosage: 25 MG, UNK
  4. OMEPRAZOLE [Concomitant]
     Dosage: 10 MG, UNK
  5. HYDROCHLOROTH [Concomitant]
     Dosage: 12.5 MG, UNK
  6. OXYBUTYNIN [Concomitant]
     Dosage: 5 MG, UNK
  7. CRESTOR [Concomitant]
     Dosage: 10 MG, UNK
  8. PLAVIX [Concomitant]
     Dosage: 75 MG, UNK
  9. ASPIRIN [Concomitant]
     Dosage: 81 MG, UNK
  10. FOLIC ACID [Concomitant]
     Dosage: UNK

REACTIONS (1)
  - Death [Fatal]
